FAERS Safety Report 6003945-4 (Version None)
Quarter: 2008Q4

REPORT INFORMATION
  Report Type: 
  Country: None (occurrence: None)
  Receive Date: 20081216
  Receipt Date: 20081205
  Transmission Date: 20090506
  Serious: Yes (Disabling, Other)
  Sender: FDA-Public Use
  Company Number: FR-CELGENEUS-056-20484-08110009

PATIENT
  Sex: Female

DRUGS (2)
  1. INNOHEP [Suspect]
     Route: 058
     Dates: start: 20031201, end: 20031201
  2. PREVISCAN [Concomitant]
     Indication: OEDEMA
     Route: 065
     Dates: start: 20031201, end: 20031201

REACTIONS (3)
  - EYELIDS PRURITUS [None]
  - GAMMOPATHY [None]
  - NEUROPATHY PERIPHERAL [None]
